FAERS Safety Report 8468953 (Version 4)
Quarter: 2012Q4

REPORT INFORMATION
  Report Type: Report from Study
  Country: JP (occurrence: JP)
  Receive Date: 20120321
  Receipt Date: 20121001
  Transmission Date: 20130627
  Serious: Yes (Hospitalization, Other)
  Sender: FDA-Public Use
  Company Number: JP-ROCHE-1050125

PATIENT
  Age: 78 Year
  Sex: Male

DRUGS (17)
  1. RANIBIZUMAB [Suspect]
     Indication: AGE-RELATED MACULAR DEGENERATION
     Route: 050
     Dates: start: 20090603
  2. RANIBIZUMAB [Suspect]
     Route: 050
     Dates: start: 20090701
  3. RANIBIZUMAB [Suspect]
     Route: 050
     Dates: start: 20090729
  4. RANIBIZUMAB [Suspect]
     Route: 050
     Dates: start: 20110302
  5. RANIBIZUMAB [Suspect]
     Route: 050
     Dates: start: 20110330
  6. RANIBIZUMAB [Suspect]
     Route: 050
     Dates: start: 20110429
  7. VERTEPORFIN [Suspect]
     Indication: AGE-RELATED MACULAR DEGENERATION
     Route: 042
     Dates: start: 20090218
  8. VERTEPORFIN [Suspect]
     Route: 042
     Dates: start: 20090513, end: 200905
  9. CRAVIT [Concomitant]
     Route: 065
     Dates: start: 200906, end: 201104
  10. BAYASPIRIN [Concomitant]
  11. NORVASC [Concomitant]
  12. OLMETEC [Concomitant]
  13. GASMOTIN [Concomitant]
  14. ARTIST [Concomitant]
  15. SIGMART [Concomitant]
  16. FRANDOL [Concomitant]
  17. TAKEPRON [Concomitant]

REACTIONS (2)
  - Cataract nuclear [Recovering/Resolving]
  - Visual acuity reduced [Not Recovered/Not Resolved]
